FAERS Safety Report 20757920 (Version 1)
Quarter: 2022Q2

REPORT INFORMATION
  Report Type: Spontaneous
  Country: SE (occurrence: SE)
  Receive Date: 20220427
  Receipt Date: 20220427
  Transmission Date: 20220721
  Serious: Yes (Other)
  Sender: FDA-Public Use
  Company Number: None

PATIENT
  Age: 15 Year
  Sex: Male

DRUGS (1)
  1. ISOTRETINOIN [Suspect]
     Active Substance: ISOTRETINOIN
     Indication: Acne
     Dosage: TAKE 4 CAPSULES DAILY FOR A FEW WEEKS NOW. TAKEN A TOTAL OF 200 CAPSULES

REACTIONS (4)
  - Paronychia [Unknown]
  - Dry skin [Unknown]
  - Skin fissures [Unknown]
  - Depressed mood [Unknown]
